FAERS Safety Report 8536168-5 (Version None)
Quarter: 2012Q3

REPORT INFORMATION
  Report Type: 
  Country: None (occurrence: None)
  Receive Date: 20120725
  Receipt Date: 20120713
  Transmission Date: 20120928
  Serious: Yes (Hospitalization)
  Sender: FDA-Public Use
  Company Number: JP-ELI_LILLY_AND_COMPANY-JP201207004769

PATIENT
  Sex: Male

DRUGS (1)
  1. FORTEO [Suspect]
     Dosage: UNK
     Route: 058
     Dates: start: 20120630

REACTIONS (5)
  - MUSCULOSKELETAL DISORDER [None]
  - PYELONEPHRITIS [None]
  - PYREXIA [None]
  - DECREASED APPETITE [None]
  - TREMOR [None]
